FAERS Safety Report 23335395 (Version 1)
Quarter: 2023Q4

REPORT INFORMATION
  Report Type: Spontaneous
  Country: GB (occurrence: GB)
  Receive Date: 20231225
  Receipt Date: 20231225
  Transmission Date: 20240110
  Serious: Yes (Death, Hospitalization, Other)
  Sender: FDA-Public Use
  Company Number: GB-MHRA-ADR 28314912

PATIENT

DRUGS (1)
  1. ZONISAMIDE [Suspect]
     Active Substance: ZONISAMIDE
     Indication: Epilepsy
     Dosage: UNK (ZONEGRAN)
     Route: 065
     Dates: start: 201607

REACTIONS (3)
  - Cough [Fatal]
  - Renal cancer [Fatal]
  - Renal impairment [Fatal]

NARRATIVE: CASE EVENT DATE: 20171217
